FAERS Safety Report 6693287-6 (Version None)
Quarter: 2010Q2

REPORT INFORMATION
  Report Type: 
  Country: None (occurrence: None)
  Receive Date: 20100421
  Receipt Date: 20100421
  Transmission Date: 20101027
  Serious: Yes (Disabling, Other)
  Sender: FDA-Public Use
  Company Number: None

PATIENT
  Age: 60 Year
  Sex: Female
  Weight: 58.514 kg

DRUGS (2)
  1. CYMBALTA [Suspect]
     Indication: FIBROMYALGIA
     Dosage: 30 MG DAILY PO
     Route: 048
     Dates: start: 20100306, end: 20100404
  2. CYMBALTA [Suspect]
     Indication: FIBROMYALGIA
     Dosage: 60 MG DAILY PO
     Route: 048
     Dates: start: 20100405, end: 20100408

REACTIONS (16)
  - ANGER [None]
  - DEPRESSION [None]
  - DIARRHOEA [None]
  - DRUG HYPERSENSITIVITY [None]
  - DYSPNOEA [None]
  - EYE PAIN [None]
  - EYE SWELLING [None]
  - GLOSSITIS [None]
  - IMPAIRED DRIVING ABILITY [None]
  - IRRITABILITY [None]
  - LOCAL SWELLING [None]
  - NAUSEA [None]
  - RASH ERYTHEMATOUS [None]
  - SWELLING FACE [None]
  - SWOLLEN TONGUE [None]
  - THINKING ABNORMAL [None]
